FAERS Safety Report 9539450 (Version 3)
Quarter: 2013Q3

REPORT INFORMATION
  Report Type: Spontaneous
  Country: JP (occurrence: JP)
  Receive Date: 20130920
  Receipt Date: 20130930
  Transmission Date: 20140515
  Serious: Yes (Hospitalization)
  Sender: FDA-Public Use
  Company Number: JP-MERCK-1308JPN012145

PATIENT
  Age: 76 Year
  Sex: Female

DRUGS (8)
  1. BONALON [Suspect]
     Indication: OSTEOPOROSIS
     Dosage: 35 MG, QW
     Route: 048
     Dates: start: 20080326, end: 20130729
  2. ONEALFA [Concomitant]
     Indication: OSTEOPOROSIS
     Dosage: 1 MICROGRAM PER DAY, STRENGTH 0.5
     Route: 048
     Dates: start: 20080326, end: 20130729
  3. ARTANE [Concomitant]
     Indication: PARKINSON^S DISEASE
     Dosage: 6 MG PER DAY
     Route: 048
     Dates: start: 20080326
  4. NAUZELIN [Concomitant]
     Indication: NAUSEA
     Dosage: 30 MG PER DAY
     Route: 048
     Dates: start: 20080326
  5. MENESIT TABLETS - 100 [Concomitant]
     Indication: PARKINSON^S DISEASE
     Dosage: 300 MG PER DAY
     Route: 048
     Dates: start: 20080326
  6. MARZULENE-S [Concomitant]
     Indication: GASTRITIS
     Dosage: 2010 MG PER DAY
     Route: 048
     Dates: start: 20080326
  7. SYMMETREL [Concomitant]
     Indication: PARKINSON^S DISEASE
     Dosage: 100 MG PER DAY
     Route: 048
     Dates: start: 20080326
  8. RIVOTRIL [Concomitant]
     Indication: PARKINSON^S DISEASE
     Dosage: 0.5 G PER DAY
     Route: 048
     Dates: start: 20080326

REACTIONS (1)
  - Atypical femur fracture [Recovering/Resolving]
